FAERS Safety Report 6686959-0 (Version None)
Quarter: 2010Q2

REPORT INFORMATION
  Report Type: 
  Country: None (occurrence: None)
  Receive Date: 20100419
  Receipt Date: 20100412
  Transmission Date: 20101027
  Serious: Yes (Hospitalization, Other)
  Sender: FDA-Public Use
  Company Number: PHHO2010FR03354

PATIENT
  Sex: Male
  Weight: 59 kg

DRUGS (29)
  1. STI571/CGP57148B T35717+TAB [Suspect]
     Indication: ACUTE LYMPHOCYTIC LEUKAEMIA
     Dosage: 400 MG, UNK
     Route: 048
     Dates: start: 20100207
  2. PREDNISONE [Concomitant]
  3. METHOTREXATE [Concomitant]
  4. DAUNORUBICIN HCL [Concomitant]
  5. CYCLOPHOSPHAMIDE [Concomitant]
  6. VINCRISTINE [Concomitant]
  7. ELSPAR [Concomitant]
  8. CYTARABINE [Concomitant]
  9. ONDANSETRON [Concomitant]
  10. CYTARABINE [Concomitant]
  11. NEULASTA [Concomitant]
  12. DOXORUBICIN HCL [Concomitant]
  13. ZOLPIDEM [Concomitant]
  14. HYDROXYZINE [Concomitant]
  15. TIAPRIDAL [Concomitant]
  16. NICOPATCH [Concomitant]
  17. CERNEVIT-12 [Concomitant]
     Dosage: UNK
  18. DEGAN [Concomitant]
  19. EUPANTOL [Concomitant]
  20. FUROSEMIDE [Concomitant]
  21. MIDAZOLAM HCL [Concomitant]
  22. OLICLINOMEL [Concomitant]
  23. PLITICAN [Concomitant]
  24. SODIUM CHLORIDE [Concomitant]
  25. TRAMADOL HCL [Concomitant]
  26. PARACETAMOL [Concomitant]
  27. TERCIAN [Concomitant]
  28. KETOPROFEN [Concomitant]
  29. TRANSFUSIONS [Concomitant]

REACTIONS (8)
  - APLASIA [None]
  - CONVULSION [None]
  - EXTENSOR PLANTAR RESPONSE [None]
  - HEADACHE [None]
  - NAUSEA [None]
  - POST LUMBAR PUNCTURE SYNDROME [None]
  - SUBDURAL HAEMATOMA [None]
  - VOMITING [None]
